FAERS Safety Report 19206815 (Version 1)
Quarter: 2021Q2

REPORT INFORMATION
  Report Type: Spontaneous
  Country: US (occurrence: US)
  Receive Date: 20210503
  Receipt Date: 20210503
  Transmission Date: 20210717
  Serious: Yes (Life-Threatening, Hospitalization)
  Sender: FDA-Public Use
  Company Number: US-CUMBERLAND-2021-US-000012

PATIENT
  Age: 27 Year
  Sex: Female

DRUGS (1)
  1. ACETADOTE [Suspect]
     Active Substance: ACETYLCYSTEINE

REACTIONS (2)
  - Brain oedema [Recovered/Resolved]
  - Drug ineffective [Unknown]
